FAERS Safety Report 7603486-4 (Version None)
Quarter: 2011Q3

REPORT INFORMATION
  Report Type: 
  Country: None (occurrence: None)
  Receive Date: 20110712
  Receipt Date: 20110630
  Transmission Date: 20111222
  Serious: Yes (Hospitalization)
  Sender: FDA-Public Use
  Company Number: NL-ELI_LILLY_AND_COMPANY-NL201009007786

PATIENT
  Sex: Male

DRUGS (20)
  1. PRAVASTATIN [Concomitant]
     Dosage: 20 MG, QD
  2. ACENOCOUMAROL [Concomitant]
  3. ESOMEPRAZOL                        /01479301/ [Concomitant]
     Dosage: 40 MG, QD
  4. METFORMIN HCL [Concomitant]
     Dosage: 500 MG, BID
  5. FORTEO [Suspect]
     Dosage: UNK, QOD
  6. FORTEO [Suspect]
     Dosage: UNK, DAILY (1/D)
  7. MESALAMINE [Concomitant]
     Dosage: 1000 MG, BID
  8. LANTUS [Concomitant]
  9. RIFAXIMIN [Concomitant]
     Dosage: 200 MG, BID
  10. METOPROLOL TARTRATE [Concomitant]
     Dosage: 100 MG, QD
  11. VITAMIN D [Concomitant]
  12. FORTEO [Suspect]
     Dosage: UNK, UNKNOWN
  13. FORTEO [Suspect]
     Dosage: UNK, QD
  14. CYCLOSPORINE [Concomitant]
     Dosage: 75 MG, UNK
  15. LACTULOSE [Concomitant]
     Dosage: 15 MG, QD
  16. MULTIVITAMIN                       /01229101/ [Concomitant]
     Dosage: 1 DF, QD
  17. NOVORAPID [Concomitant]
  18. PREDNISONE [Concomitant]
     Dosage: 10 MG, QD
  19. CELLCEPT [Concomitant]
     Dosage: 1000 MG, BID
  20. URSOCHOL [Concomitant]
     Dosage: 300 MG, QID

REACTIONS (7)
  - ADVERSE EVENT [None]
  - DEHYDRATION [None]
  - NAUSEA [None]
  - GASTROENTERITIS VIRAL [None]
  - FEELING COLD [None]
  - INAPPROPRIATE SCHEDULE OF DRUG ADMINISTRATION [None]
  - TREMOR [None]
